FAERS Safety Report 12954568 (Version 1)
Quarter: 2016Q4

REPORT INFORMATION
  Report Type: Spontaneous
  Country: US (occurrence: US)
  Receive Date: 20161117
  Receipt Date: 20161117
  Transmission Date: 20170207
  Serious: Yes (Death, Life-Threatening, Hospitalization, Other)
  Sender: FDA-Public Use
  Company Number: None

PATIENT
  Age: 55 Year
  Sex: Male
  Weight: 108.7 kg

DRUGS (1)
  1. BLEOMYCIN [Suspect]
     Active Substance: BLEOMYCIN SULFATE
     Indication: TOXICITY TO VARIOUS AGENTS
     Dosage: UNITS
     Route: 042
     Dates: start: 20160630, end: 20160714

REACTIONS (3)
  - Alveolitis allergic [None]
  - Respiratory failure [None]
  - Pulmonary toxicity [None]

NARRATIVE: CASE EVENT DATE: 20160802
